FAERS Safety Report 7386665-3 (Version None)
Quarter: 2011Q1

REPORT INFORMATION
  Report Type: 
  Country: None (occurrence: None)
  Receive Date: 20110329
  Receipt Date: 20110329
  Transmission Date: 20110831
  Serious: No
  Sender: FDA-Public Use
  Company Number: None

PATIENT
  Age: 27 Year
  Sex: Female

DRUGS (1)
  1. NEURONTIN [Suspect]
     Indication: OSTEOARTHRITIS
     Dosage: 100MG UP TO 3 TIMES/DAY BY MOUTH (047)
     Dates: start: 20101130, end: 20101222

REACTIONS (1)
  - VISION BLURRED [None]
